FAERS Safety Report 8345489-0 (Version None)
Quarter: 2012Q2

REPORT INFORMATION
  Report Type: 
  Country: None (occurrence: None)
  Receive Date: 20120508
  Receipt Date: 20120502
  Transmission Date: 20120825
  Serious: Yes (Other)
  Sender: FDA-Public Use
  Company Number: NL-PFIZER INC-2012108219

PATIENT
  Age: 34 Year
  Sex: Male
  Weight: 85 kg

DRUGS (3)
  1. CLOMIPRAMINE [Concomitant]
  2. MIRTAZAPINE [Concomitant]
  3. ALPRAZOLAM [Suspect]
     Indication: ANXIETY DISORDER
     Dosage: 5 MG, 4X/DAY
     Dates: start: 20050215

REACTIONS (3)
  - SUICIDAL IDEATION [None]
  - DEPRESSION [None]
  - ANXIETY [None]
